FAERS Safety Report 9213099 (Version 2)
Quarter: 2014Q1

REPORT INFORMATION
  Report Type: Spontaneous
  Country: US (occurrence: US)
  Receive Date: 20130405
  Receipt Date: 20140129
  Transmission Date: 20141002
  Serious: No
  Sender: FDA-Public Use
  Company Number: US-PFIZER INC-2013104203

PATIENT
  Age: 52 Year
  Sex: Female

DRUGS (4)
  1. ENBREL [Suspect]
     Dosage: UNK
  2. HUMIRA [Suspect]
     Dosage: UNK
  3. MELOXICAM [Concomitant]
     Dosage: 7.5 MG, UNK
  4. XELJANZ [Concomitant]
     Dosage: UNK

REACTIONS (4)
  - Headache [Unknown]
  - Pain in extremity [Unknown]
  - Drug effect incomplete [Unknown]
  - Drug ineffective [Unknown]
